FAERS Safety Report 6404069-4 (Version None)
Quarter: 2009Q4

REPORT INFORMATION
  Report Type: 
  Country: None (occurrence: None)
  Receive Date: 20091013
  Receipt Date: 20090929
  Transmission Date: 20100525
  Serious: Yes (Life-Threatening)
  Sender: FDA-Public Use
  Company Number: 1000009276

PATIENT
  Age: 61 Year
  Sex: Female

DRUGS (10)
  1. CITALOPRAM HYDROBROMIDE [Suspect]
     Indication: DEPRESSION
     Dosage: 1 DOSAGE FORMS (1 DOSAGE FORMS,1 IN 1 D),ORAL
     Route: 048
     Dates: end: 20080624
  2. TIAPRIDE [Suspect]
     Indication: PSYCHOTIC DISORDER
     Dosage: (0.25 DOSAGE FORMS),ORAL
     Route: 048
     Dates: end: 20080624
  3. LAROXYL [Suspect]
     Indication: DEPRESSION
     Dosage: ORAL
     Route: 048
     Dates: end: 20080624
  4. BIPERIDYS [Suspect]
     Dosage: ORAL
     Route: 048
  5. SPIRONOLACTONE [Suspect]
     Dosage: ORAL
     Route: 048
  6. LIORESAL [Concomitant]
  7. LYRICA [Concomitant]
  8. INIPOMP [Concomitant]
  9. PRAXINOR [Concomitant]
  10. ACTONEL [Concomitant]

REACTIONS (11)
  - BURNS FIRST DEGREE [None]
  - COMA [None]
  - CYTOLYTIC HEPATITIS [None]
  - DIALYSIS [None]
  - HEPATIC FAILURE [None]
  - HYPOTENSION [None]
  - NEUROLEPTIC MALIGNANT SYNDROME [None]
  - NEUROMYOPATHY [None]
  - RENAL FAILURE ACUTE [None]
  - RHABDOMYOLYSIS [None]
  - SEROTONIN SYNDROME [None]
